FAERS Safety Report 6519745-2 (Version None)
Quarter: 2009Q4

REPORT INFORMATION
  Report Type: 
  Country: None (occurrence: None)
  Receive Date: 20091228
  Receipt Date: 20091215
  Transmission Date: 20100525
  Serious: Yes (Hospitalization, Other)
  Sender: FDA-Public Use
  Company Number: DE-PFIZER INC-2009155760

PATIENT
  Age: 23 Year
  Sex: Female
  Weight: 63 kg

DRUGS (13)
  1. LYRICA [Suspect]
     Indication: NEURALGIA
     Dosage: 75 MG, 4X/DAY
     Route: 048
     Dates: start: 20080401, end: 20090120
  2. GABAPENTIN [Suspect]
     Indication: NEURALGIA
     Dosage: 600 MG, 4X/DAY
     Route: 048
     Dates: start: 20080201
  3. VOLTAREN [Suspect]
     Dosage: 800 MG, 3X/DAY
     Dates: start: 20080801
  4. TILIDINE [Suspect]
     Indication: NEURALGIA
     Dosage: 100 MG, 2X/DAY
     Route: 048
     Dates: start: 20081210
  5. TILIDINE [Suspect]
     Dosage: 50 MG, 2X/DAY
     Route: 048
     Dates: start: 20081215, end: 20081215
  6. IBUPROFEN [Suspect]
     Indication: NEURALGIA
     Dosage: 800 MG, 3X/DAY
     Route: 048
     Dates: start: 20080801, end: 20090101
  7. DICLOFENAC RESINATE [Suspect]
     Indication: NEURALGIA
     Dosage: UNK
     Route: 048
     Dates: start: 20081201, end: 20081201
  8. VITAMIN B KOMPLEX [Suspect]
     Dosage: UNK
     Dates: start: 20090201, end: 20090213
  9. OMEPRAZOL [Suspect]
     Dosage: UNK
     Dates: start: 20090201, end: 20090213
  10. PARACETAMOL [Concomitant]
     Indication: NEURALGIA
     Dosage: 500 MG, 4X/DAY
     Route: 048
     Dates: start: 20081101, end: 20081201
  11. PANTOPRAZOLE [Concomitant]
     Dosage: 20 MG, AS NEEDED
  12. URBASON [Concomitant]
     Indication: COMPLEX REGIONAL PAIN SYNDROME
     Dosage: 80 MG, 1X/DAY
     Route: 048
  13. ORAL CONTRACEPTIVE NOS [Concomitant]
     Indication: CONTRACEPTION
     Dosage: UNK

REACTIONS (13)
  - ABDOMINAL PAIN [None]
  - APATHY [None]
  - APHASIA [None]
  - BLINDNESS TRANSIENT [None]
  - CONFUSIONAL STATE [None]
  - CONVULSION [None]
  - DISORIENTATION [None]
  - HAEMATEMESIS [None]
  - HYPOAESTHESIA [None]
  - LOSS OF CONSCIOUSNESS [None]
  - MUSCLE RIGIDITY [None]
  - PARALYSIS [None]
  - WITHDRAWAL SYNDROME [None]
